FAERS Safety Report 13861603 (Version 2)
Quarter: 2018Q1

REPORT INFORMATION
  Report Type: Report from Study
  Country: US (occurrence: BR)
  Receive Date: 20170811
  Receipt Date: 20180202
  Transmission Date: 20180508
  Serious: Yes (Life-Threatening, Other)
  Sender: FDA-Public Use
  Company Number: US-SUNOVION-2017SUN003518

PATIENT
  Sex: Female
  Weight: 148 kg

DRUGS (13)
  1. INDACATEROL AND GLYCOPYRROLATE [Suspect]
     Active Substance: GLYCOPYRROLATE\INDACATEROL MALEATE
     Dosage: 1 DF (110/50 UG), QD
     Route: 055
  2. OMEPRAZOLE. [Concomitant]
     Active Substance: OMEPRAZOLE
     Dosage: UNK
  3. INDACATEROL AND GLYCOPYRROLATE [Suspect]
     Active Substance: GLYCOPYRROLATE\INDACATEROL MALEATE
     Indication: RESPIRATORY DISORDER
     Dosage: 1 DF (110/50 UG), QD
     Route: 055
  4. LASAL [Concomitant]
     Dosage: 500 MG, UNK
  5. SPIRONOLACTONE. [Concomitant]
     Active Substance: SPIRONOLACTONE
     Dosage: UNK (TABLET)
  6. NEMODINE [Concomitant]
     Dosage: 10 MG, UNK (TABLET)
  7. MELOXICAM. [Concomitant]
     Active Substance: MELOXICAM
     Dosage: UNK
  8. GLIFAGE [Concomitant]
     Active Substance: METFORMIN HYDROCHLORIDE
     Dosage: UNK
  9. ACYCLOVIR. [Concomitant]
     Active Substance: ACYCLOVIR
     Dosage: 50 MG, UNK (SYRUP)
  10. RIVOTRIL [Concomitant]
     Active Substance: CLONAZEPAM
     Dosage: 2 MG, UNK (TABLET)
  11. SIMVASTATIN. [Concomitant]
     Active Substance: SIMVASTATIN
     Dosage: 10 MG, UNK (TABLET)
  12. SUSTRATE [Concomitant]
     Active Substance: PROPATYL NITRATE
     Dosage: UNK (TABLET)
  13. ATROVENT [Concomitant]
     Active Substance: IPRATROPIUM BROMIDE
     Dosage: UNK

REACTIONS (17)
  - Cough [Unknown]
  - Feeling abnormal [Unknown]
  - Respiratory tract congestion [Unknown]
  - Product use in unapproved indication [Unknown]
  - Insomnia [Not Recovered/Not Resolved]
  - Weight increased [Unknown]
  - Hypersensitivity [Unknown]
  - Drug ineffective [Unknown]
  - Nervous system disorder [Unknown]
  - Feeling of despair [Unknown]
  - Nervousness [Unknown]
  - Sputum discoloured [Not Recovered/Not Resolved]
  - Panic attack [Not Recovered/Not Resolved]
  - Oropharyngeal plaque [Not Recovered/Not Resolved]
  - Dyspnoea [Not Recovered/Not Resolved]
  - Body height decreased [Unknown]
  - Obstructive airways disorder [Not Recovered/Not Resolved]
